FAERS Safety Report 15298226 (Version 1)
Quarter: 2018Q3

REPORT INFORMATION
  Report Type: Spontaneous
  Country: US (occurrence: US)
  Receive Date: 20180820
  Receipt Date: 20180820
  Transmission Date: 20181010
  Serious: No
  Sender: FDA-Public Use
  Company Number: US-ALLERGAN-1833599US

PATIENT
  Age: 30 Year
  Sex: Female

DRUGS (11)
  1. SAPHRIS [Suspect]
     Active Substance: ASENAPINE MALEATE
     Dosage: 15 MG, QD
     Route: 060
     Dates: start: 20180620, end: 20180627
  2. LITHIUM. [Concomitant]
     Active Substance: LITHIUM
     Route: 065
  3. BENZTROPINE MESYLATE. [Concomitant]
     Active Substance: BENZTROPINE MESYLATE
     Route: 065
  4. PERIDOL [Concomitant]
     Active Substance: HALOPERIDOL
     Route: 065
  5. PROPRANOLOL [Concomitant]
     Active Substance: PROPRANOLOL HYDROCHLORIDE
     Route: 065
  6. LORAZEPAM. [Concomitant]
     Active Substance: LORAZEPAM
     Route: 065
  7. SAPHRIS [Suspect]
     Active Substance: ASENAPINE MALEATE
     Indication: BIPOLAR DISORDER
     Dosage: 5 MG, UNK
     Route: 060
     Dates: start: 20180523, end: 20180620
  8. LAMOTRIGINE. [Concomitant]
     Active Substance: LAMOTRIGINE
     Route: 065
  9. LEVOTHYROXINE SODIUM. [Concomitant]
     Active Substance: LEVOTHYROXINE SODIUM
     Route: 065
  10. DOXEPIN HYDROCHLORIDE. [Concomitant]
     Active Substance: DOXEPIN HYDROCHLORIDE
     Route: 065
  11. HALDOL [Concomitant]
     Active Substance: HALOPERIDOL
     Route: 065

REACTIONS (3)
  - Disorientation [Not Recovered/Not Resolved]
  - Confusional state [Not Recovered/Not Resolved]
  - Off label use [Unknown]
